FAERS Safety Report 8012419-0 (Version None)
Quarter: 2011Q4

REPORT INFORMATION
  Report Type: 
  Country: None (occurrence: None)
  Receive Date: 20111228
  Receipt Date: 20111223
  Transmission Date: 20120403
  Serious: Yes (Hospitalization)
  Sender: FDA-Public Use
  Company Number: PL-ROCHE-665086

PATIENT
  Sex: Male
  Weight: 66 kg

DRUGS (5)
  1. TEMSIROLIMUS [Suspect]
     Route: 042
  2. AVASTIN [Suspect]
     Route: 042
     Dates: start: 20091123, end: 20091207
  3. AVASTIN [Suspect]
     Indication: RENAL CELL CARCINOMA
     Route: 042
     Dates: start: 20090727, end: 20091026
  4. AVASTIN [Suspect]
     Route: 042
  5. TEMSIROLIMUS [Suspect]
     Indication: RENAL CELL CARCINOMA
     Route: 042
     Dates: start: 20090727, end: 20091026

REACTIONS (3)
  - RENAL FAILURE [None]
  - HYPERCALCAEMIA [None]
  - STOMATITIS [None]
